FAERS Safety Report 23100866 (Version 1)
Quarter: 2023Q4

REPORT INFORMATION
  Report Type: Spontaneous
  Country: GB (occurrence: GB)
  Receive Date: 20231024
  Receipt Date: 20231024
  Transmission Date: 20240109
  Serious: Yes (Hospitalization)
  Sender: FDA-Public Use
  Company Number: GB-FERRINGPH-2023FE05059

PATIENT
  Age: 8 Year
  Sex: Male

DRUGS (1)
  1. DESMOPRESSIN ACETATE [Suspect]
     Active Substance: DESMOPRESSIN ACETATE
     Indication: Enuresis
     Dosage: UNK, MAXIMUM DOSE
     Route: 065

REACTIONS (3)
  - Syncope [Unknown]
  - Syncope [Unknown]
  - Syncope [Unknown]
